FAERS Safety Report 24139730 (Version 1)
Quarter: 2024Q3

REPORT INFORMATION
  Report Type: Spontaneous
  Country: PR (occurrence: PR)
  Receive Date: 20240726
  Receipt Date: 20240726
  Transmission Date: 20241017
  Serious: No
  Sender: BIOGEN
  Company Number: PR-BIOGEN-2024BI01274603

PATIENT
  Age: 57 Year
  Sex: Female
  Weight: 87.622 kg

DRUGS (1)
  1. TYSABRI [Suspect]
     Active Substance: NATALIZUMAB
     Indication: Multiple sclerosis
     Route: 050
     Dates: start: 201004, end: 20240612

REACTIONS (3)
  - Prescribed underdose [Recovered/Resolved]
  - Exfoliative rash [Not Recovered/Not Resolved]
  - Platelet count decreased [Not Recovered/Not Resolved]

NARRATIVE: CASE EVENT DATE: 20100401
